FAERS Safety Report 8836074 (Version 4)
Quarter: 2013Q3

REPORT INFORMATION
  Report Type: Report from Study
  Country: JP (occurrence: JP)
  Receive Date: 20121011
  Receipt Date: 20130821
  Transmission Date: 20140515
  Serious: Yes (Death, Life-Threatening, Other)
  Sender: FDA-Public Use
  Company Number: JP-VERTEX PHARMACEUTICAL INC.-2012-022575

PATIENT
  Age: 77 Year
  Sex: Male

DRUGS (10)
  1. VX-950 (TELAPREVIR) [Suspect]
     Indication: CHRONIC HEPATITIS C
     Dosage: 2250 MG, QD
     Route: 048
     Dates: start: 20120329, end: 20120418
  2. VX-950 (TELAPREVIR) [Suspect]
     Dosage: 1500 MG, QD
     Route: 048
     Dates: start: 20120419, end: 20120620
  3. RIBAVIRIN [Suspect]
     Indication: CHRONIC HEPATITIS C
     Dosage: 600 MG, QD
     Route: 048
     Dates: start: 20120329, end: 20120426
  4. RIBAVIRIN [Suspect]
     Dosage: 200 MG, QD
     Route: 048
     Dates: start: 20120427, end: 20120701
  5. PEGINTERFERON ALFA-2B [Suspect]
     Indication: CHRONIC HEPATITIS C
     Dosage: 1.5 ?G/KG, UNK
     Route: 058
     Dates: start: 20120329, end: 20120426
  6. PEGINTERFERON ALFA-2B [Suspect]
     Dosage: 0.8 ?G/KG, QW
     Route: 058
     Dates: start: 20120427, end: 20120630
  7. SEIBULE [Concomitant]
     Dosage: 150 MG, QD
     Route: 048
     Dates: end: 20120701
  8. AMARYL [Concomitant]
     Dosage: 1 MG, QD
     Route: 048
     Dates: end: 20120701
  9. TAKEPRON [Concomitant]
     Dosage: 15 MG, QD
     Route: 048
     Dates: end: 20120701
  10. HERBESSER 90 [Concomitant]
     Dosage: 100 MG, QD
     Route: 048
     Dates: end: 20120701

REACTIONS (5)
  - Haemoglobin decreased [Not Recovered/Not Resolved]
  - Multi-organ failure [Fatal]
  - Endocarditis [Not Recovered/Not Resolved]
  - Atrial fibrillation [Not Recovered/Not Resolved]
  - Embolic cerebral infarction [Not Recovered/Not Resolved]
